FAERS Safety Report 17452362 (Version 3)
Quarter: 2021Q1

REPORT INFORMATION
  Report Type: Report from Study
  Country: CA (occurrence: CA)
  Receive Date: 20200224
  Receipt Date: 20210202
  Transmission Date: 20210419
  Serious: Yes (Life-Threatening, Hospitalization, Other)
  Sender: FDA-Public Use
  Company Number: CA-GLAXOSMITHKLINE-CA2020AMR031968

PATIENT
  Sex: Male

DRUGS (8)
  1. INCRUSE ELLIPTA [Suspect]
     Active Substance: UMECLIDINIUM BROMIDE
     Indication: ASTHMA
     Dosage: 1 PUFF(S), QD
  2. SALBUTAMOL SULPHATE [Suspect]
     Active Substance: ALBUTEROL SULFATE
     Indication: ASTHMA
     Dosage: 2 PUFF(S),PRN,100MCG
  3. IPRATROPIUM [Suspect]
     Active Substance: IPRATROPIUM
     Indication: PRODUCT USED FOR UNKNOWN INDICATION
     Dosage: 8 PUFF(S), QD
  4. XOLAIR [Suspect]
     Active Substance: OMALIZUMAB
     Indication: PRODUCT USED FOR UNKNOWN INDICATION
     Dosage: UNK
  5. SOLU?MEDROL [Suspect]
     Active Substance: METHYLPREDNISOLONE SODIUM SUCCINATE
     Indication: ASTHMA
     Dosage: UNK
  6. ENOX [BENZALKONIUM CHLORIDE;NORFLOXACIN] [Suspect]
     Active Substance: BENZALKONIUM CHLORIDE\NORFLOXACIN
     Indication: THROMBOSIS PROPHYLAXIS
     Dosage: UNK
  7. BREO ELLIPTA [Suspect]
     Active Substance: FLUTICASONE FUROATE\VILANTEROL TRIFENATATE
     Indication: ASTHMA
     Dosage: 1 PUFF(S), QD, DAILY (200/25 MCG)
  8. PREDNISONE. [Suspect]
     Active Substance: PREDNISONE
     Indication: PRODUCT USED FOR UNKNOWN INDICATION
     Dosage: 60 MG, QD

REACTIONS (16)
  - Chest discomfort [Unknown]
  - Therapeutic product effect incomplete [Unknown]
  - Obstructive airways disorder [Unknown]
  - Dyspnoea [Recovering/Resolving]
  - Electrocardiogram repolarisation abnormality [Unknown]
  - Blood immunoglobulin E increased [Unknown]
  - Loss of personal independence in daily activities [Recovering/Resolving]
  - Suicide attempt [Unknown]
  - Cough [Unknown]
  - Wheezing [Recovered/Resolved]
  - Asthma [Recovering/Resolving]
  - Borderline personality disorder [Unknown]
  - Blood count abnormal [Unknown]
  - Crohn^s disease [Unknown]
  - Breath sounds abnormal [Unknown]
  - Sinus tachycardia [Unknown]
